FAERS Safety Report 12256855 (Version 4)
Quarter: 2016Q2

REPORT INFORMATION
  Report Type: Spontaneous
  Country: JP (occurrence: JP)
  Receive Date: 20160412
  Receipt Date: 20160623
  Transmission Date: 20160815
  Serious: No
  Sender: FDA-Public Use
  Company Number: JP-GLAXOSMITHKLINE-JP2016JPN048007

PATIENT
  Age: 40 Year
  Sex: Male

DRUGS (3)
  1. TENOZET [Suspect]
     Active Substance: TENOFOVIR DISOPROXIL FUMARATE
     Indication: CHRONIC HEPATITIS B
     Dosage: 300 MG, QD
     Route: 048
     Dates: start: 20140822
  2. ZEFIX [Suspect]
     Active Substance: LAMIVUDINE
     Indication: CHRONIC HEPATITIS B
     Dosage: UNK UNK, 1D
     Route: 048
     Dates: start: 200101, end: 200204
  3. ZEFIX [Suspect]
     Active Substance: LAMIVUDINE
     Dosage: 100 MG, 1D
     Route: 048
     Dates: start: 200205

REACTIONS (2)
  - Thirst [Recovered/Resolved]
  - Alanine aminotransferase increased [Recovered/Resolved]

NARRATIVE: CASE EVENT DATE: 200205
